FAERS Safety Report 9209855 (Version 1)
Quarter: 2012Q4

REPORT INFORMATION
  Report Type: 
  Country: UZ (occurrence: UZ)
  Receive Date: 20120903
  Receipt Date: 20120903
  Transmission Date: 20130627
  Serious: Yes (Other)
  Sender: FDA-Public Use
  Company Number: PHHY2012UZ075643

PATIENT
  Sex: Male

DRUGS (2)
  1. GLIVEC [Suspect]
     Indication: CHRONIC MYELOID LEUKAEMIA
     Dosage: 400 mg,
  2. GLIVEC [Suspect]
     Dosage: 300 mg

REACTIONS (3)
  - Diabetes mellitus [Unknown]
  - Retinopathy [Unknown]
  - Ascites [Unknown]
